FAERS Safety Report 9514499 (Version 1)
Quarter: 2013Q3

REPORT INFORMATION
  Report Type: Spontaneous
  Country: CA (occurrence: CA)
  Receive Date: 20130911
  Receipt Date: 20130911
  Transmission Date: 20140515
  Serious: Yes (Other)
  Sender: FDA-Public Use
  Company Number: CA-ROCHE-1273425

PATIENT
  Age: 4 Year
  Sex: Male
  Weight: 19 kg

DRUGS (5)
  1. CEFTRIAXONE [Suspect]
     Indication: PRODUCT USED FOR UNKNOWN INDICATION
     Dosage: THERAPY DURATION: 2.0 DAYS
     Route: 042
  2. CEPHALEXIN [Suspect]
     Indication: PRODUCT USED FOR UNKNOWN INDICATION
     Dosage: THERAPY DURATION: 2.0 DAYS
     Route: 048
  3. IBUPROFEN [Concomitant]
     Route: 048
  4. TOBRADEX [Concomitant]
     Route: 047
  5. VANCOMYCIN [Concomitant]
     Route: 042

REACTIONS (2)
  - Jaundice [Recovered/Resolved]
  - Sepsis [Recovered/Resolved]
